FAERS Safety Report 4532830-X (Version None)
Quarter: 2004Q4

REPORT INFORMATION
  Report Type: 
  Country: None (occurrence: None)
  Receive Date: 20041206
  Receipt Date: 20041015
  Transmission Date: 20050328
  Serious: No
  Sender: FDA-Public Use
  Company Number: USA041081341

PATIENT
  Age: 76 Year
  Sex: Female

DRUGS (3)
  1. CYMBALTA [Suspect]
     Indication: ARTHRALGIA
     Dosage: 30 MG
  2. DIGOXIN [Concomitant]
  3. ASPIRIN [Concomitant]

REACTIONS (2)
  - LETHARGY [None]
  - SOMNOLENCE [None]
